FAERS Safety Report 24691335 (Version 1)
Quarter: 2024Q4

REPORT INFORMATION
  Report Type: Spontaneous
  Country: US (occurrence: None)
  Receive Date: 20241203
  Receipt Date: 20241203
  Transmission Date: 20250115
  Serious: No
  Sender: Public
  Company Number: None

PATIENT
  Age: 65 Year
  Sex: Female
  Weight: 80.74 kg

DRUGS (3)
  1. SIMPONI [Suspect]
     Active Substance: GOLIMUMAB
     Indication: Rheumatoid arthritis
     Dosage: INJECT 50MG SUBCUTANEOUSLY EVERY 4 WEEKS AS DIRECTED.
     Route: 058
     Dates: start: 202403
  2. SIMPONI [Suspect]
     Active Substance: GOLIMUMAB
     Indication: Rheumatoid factor positive
  3. SIMPONI [Suspect]
     Active Substance: GOLIMUMAB
     Indication: Polyarthritis

REACTIONS (2)
  - COVID-19 [None]
  - Therapy interrupted [None]
